FAERS Safety Report 12187149 (Version 7)
Quarter: 2016Q3

REPORT INFORMATION
  Report Type: Spontaneous
  Country: GB (occurrence: GB)
  Receive Date: 20160317
  Receipt Date: 20160714
  Transmission Date: 20161109
  Serious: Yes (Hospitalization, Other)
  Sender: FDA-Public Use
  Company Number: GB-SA-2016SA043277

PATIENT
  Sex: Male

DRUGS (8)
  1. FABRAZYME [Suspect]
     Active Substance: AGALSIDASE BETA
     Route: 041
  2. FABRAZYME [Suspect]
     Active Substance: AGALSIDASE BETA
     Route: 041
  3. FABRAZYME [Suspect]
     Active Substance: AGALSIDASE BETA
     Route: 041
  4. FABRAZYME [Suspect]
     Active Substance: AGALSIDASE BETA
     Route: 041
  5. FABRAZYME [Suspect]
     Active Substance: AGALSIDASE BETA
     Route: 041
  6. FABRAZYME [Suspect]
     Active Substance: AGALSIDASE BETA
     Route: 041
  7. FABRAZYME [Suspect]
     Active Substance: AGALSIDASE BETA
     Route: 041
  8. FABRAZYME [Suspect]
     Active Substance: AGALSIDASE BETA
     Route: 041

REACTIONS (6)
  - Diarrhoea [Not Recovered/Not Resolved]
  - Vomiting [Recovered/Resolved]
  - Nausea [Not Recovered/Not Resolved]
  - Malaise [Recovering/Resolving]
  - Device related infection [Recovered/Resolved]
  - Abdominal pain upper [Not Recovered/Not Resolved]

NARRATIVE: CASE EVENT DATE: 201602
